FAERS Safety Report 6703655-1 (Version None)
Quarter: 2010Q2

REPORT INFORMATION
  Report Type: 
  Country: None (occurrence: None)
  Receive Date: 20100430
  Receipt Date: 20100420
  Transmission Date: 20101027
  Serious: Yes (Hospitalization)
  Sender: FDA-Public Use
  Company Number: CA-BRISTOL-MYERS SQUIBB COMPANY-15071343

PATIENT
  Age: 47 Year
  Sex: Female
  Weight: 92 kg

DRUGS (8)
  1. ATAZANAVIR [Suspect]
     Indication: HIV INFECTION
     Dates: start: 20080820
  2. ABACAVIR SULFATE AND LAMIVUDINE [Concomitant]
     Indication: HIV INFECTION
  3. VENLAFAXINE HCL [Concomitant]
     Dosage: EXTENDED-RELEASE VENLAFAXINE
  4. AMITRIPTYLINE HCL [Concomitant]
     Dosage: 40 MG AT BEDTIME
  5. MULTI-VITAMIN [Concomitant]
  6. CALCIUM [Concomitant]
  7. VITAMIN D [Concomitant]
  8. VITAMIN E [Concomitant]

REACTIONS (2)
  - BILE DUCT STONE [None]
  - HEPATITIS ACUTE [None]
